FAERS Safety Report 16671389 (Version 2)
Quarter: 2020Q2

REPORT INFORMATION
  Report Type: Spontaneous
  Country: NL (occurrence: NL)
  Receive Date: 20190806
  Receipt Date: 20200507
  Transmission Date: 20200713
  Serious: Yes (Life-Threatening, Hospitalization, Other)
  Sender: FDA-Public Use
  Company Number: NL-AUROBINDO-AUR-APL-2019-037899

PATIENT
  Age: 18 Year
  Sex: Male
  Weight: 97 kg

DRUGS (10)
  1. METHOTREXATE. [Interacting]
     Active Substance: METHOTREXATE
     Indication: METASTASES TO LUNG
     Dosage: IN 6 HOURS ON DAYS 21 AND 28
     Route: 042
  2. CISPLATIN. [Suspect]
     Active Substance: CISPLATIN
     Indication: OSTEOSARCOMA METASTATIC
     Dosage: UNK UNK, CYCLICAL, DAY 1-3, IN A 5- WEEKLY REGIMEN
     Route: 065
  3. CISPLATIN. [Suspect]
     Active Substance: CISPLATIN
     Dosage: DAY 2-3, IN A 5- WEEKLY REGIMEN
     Dates: start: 2018
  4. FOLINIC ACID [Concomitant]
     Active Substance: LEUCOVORIN
     Indication: OSTEOSARCOMA METASTATIC
  5. METHOTREXATE. [Suspect]
     Active Substance: METHOTREXATE
     Indication: OSTEOSARCOMA METASTATIC
     Dosage: UNK UNK, CYCLICAL
     Route: 065
  6. DOXORUBICIN [Suspect]
     Active Substance: DOXORUBICIN
     Indication: OSTEOSARCOMA METASTATIC
     Dosage: UNK UNK, CYCLICAL, DAY 1-3, IN A 5- WEEKLY REGIMEN
     Route: 065
  7. CISPLATIN. [Suspect]
     Active Substance: CISPLATIN
     Indication: METASTASES TO LUNG
     Dosage: DAY 1-3, IN A 5- WEEKLY REGIMEN
     Dates: start: 2018
  8. FOLINIC ACID [Concomitant]
     Active Substance: LEUCOVORIN
     Indication: METASTASES TO LUNG
     Dosage: UNK
     Route: 065
  9. DOXORUBICIN [Suspect]
     Active Substance: DOXORUBICIN
     Indication: METASTASES TO LUNG
     Dosage: UNK
  10. PIPERACILLIN AND TAZOBACTAM [Interacting]
     Active Substance: PIPERACILLIN SODIUM\TAZOBACTAM SODIUM
     Indication: PRODUCT USED FOR UNKNOWN INDICATION
     Dosage: UNK
     Route: 065

REACTIONS (9)
  - Hepatotoxicity [Recovering/Resolving]
  - Drug ineffective [Recovered/Resolved]
  - Transaminases increased [Recovering/Resolving]
  - Renal impairment [Recovered/Resolved]
  - Drug clearance decreased [Recovering/Resolving]
  - Mucosal inflammation [Unknown]
  - Toxicity to various agents [Recovering/Resolving]
  - Drug level increased [Recovering/Resolving]
  - Drug interaction [Recovering/Resolving]
